FAERS Safety Report 8257391-3 (Version None)
Quarter: 2012Q2

REPORT INFORMATION
  Report Type: 
  Country: None (occurrence: None)
  Receive Date: 20120403
  Receipt Date: 20120329
  Transmission Date: 20120825
  Serious: Yes (Other)
  Sender: FDA-Public Use
  Company Number: JP-PFIZER INC-2012053077

PATIENT
  Age: 80 Year
  Sex: Male
  Weight: 37.5 kg

DRUGS (8)
  1. MICARDIS [Concomitant]
     Dosage: 40 MG, 1X/DAY
     Route: 048
     Dates: start: 20120225
  2. LYRICA [Suspect]
     Indication: PAIN IN EXTREMITY
     Dosage: 75 MG, 2X/DAY
     Route: 048
     Dates: start: 20120225, end: 20120227
  3. JANUVIA [Concomitant]
     Indication: TYPE 2 DIABETES MELLITUS
     Dosage: 50 MG, 1X/DAY
     Route: 048
     Dates: start: 20120225
  4. LANTUS [Concomitant]
     Indication: TYPE 2 DIABETES MELLITUS
     Dosage: 8 IU, 1X/DAY
     Route: 058
     Dates: start: 20120221, end: 20120223
  5. ASPIRIN [Concomitant]
     Dosage: 100 MG, 1X/DAY
     Route: 048
     Dates: start: 20120222
  6. FLENIED [Concomitant]
     Dosage: 200 MG, 2X/DAY
     Route: 048
     Dates: start: 20120224
  7. LAMISIL [Concomitant]
     Dosage: UNK
  8. LYRICA [Suspect]
     Indication: HYPOAESTHESIA

REACTIONS (1)
  - MYOCLONIC EPILEPSY [None]
